FAERS Safety Report 8953967 (Version 1)
Quarter: 2012Q4

REPORT INFORMATION
  Report Type: 
  Country: US (occurrence: US)
  Receive Date: 20121206
  Receipt Date: 20121206
  Transmission Date: 20130627
  Serious: No
  Sender: FDA-Public Use
  Company Number: US-009507513-1212USA000606

PATIENT
  Age: 61 Year
  Sex: Male
  Weight: 150 kg

DRUGS (6)
  1. VICTRELIS [Suspect]
     Dosage: 200 mg, UNK
  2. PEGINTRON [Suspect]
     Dosage: 82 Microgram, qw 0.5 ml and inject subq wkly
     Route: 058
  3. PEGINTRON [Suspect]
     Dosage: 120 microgram, UNK
  4. RIBAVIRIN [Suspect]
     Dosage: 300 mg UNK
  5. RIBAVIRIN [Suspect]
     Dosage: 200 UNK, UNK
  6. NEUPOGEN [Suspect]
     Dosage: 300 Microgram, UNK

REACTIONS (4)
  - White blood cell count decreased [Unknown]
  - Irritability [Unknown]
  - Fatigue [Unknown]
  - Mood altered [Unknown]
